FAERS Safety Report 20752523 (Version 2)
Quarter: 2022Q2

REPORT INFORMATION
  Report Type: Spontaneous
  Country: US (occurrence: None)
  Receive Date: 20220426
  Receipt Date: 20220527
  Transmission Date: 20220720
  Serious: No
  Sender: FDA-Public Use
  Company Number: 2022A133376

PATIENT
  Age: 75 Year
  Weight: 96.2 kg

DRUGS (2)
  1. BYDUREON BCISE [Suspect]
     Active Substance: EXENATIDE
     Indication: Type 2 diabetes mellitus
     Route: 058
     Dates: start: 2020
  2. BYDUREON [Suspect]
     Active Substance: EXENATIDE
     Indication: Type 2 diabetes mellitus
     Route: 058
     Dates: start: 2019, end: 2020

REACTIONS (8)
  - Injection site mass [Recovered/Resolved]
  - Glycosylated haemoglobin decreased [Unknown]
  - Appetite disorder [Not Recovered/Not Resolved]
  - Weight decreased [Not Recovered/Not Resolved]
  - Device use issue [Unknown]
  - Device issue [Unknown]
  - Device delivery system issue [Unknown]
  - Device leakage [Unknown]

NARRATIVE: CASE EVENT DATE: 20190101
